FAERS Safety Report 15282056 (Version 3)
Quarter: 2021Q2

REPORT INFORMATION
  Report Type: Spontaneous
  Country: US (occurrence: US)
  Receive Date: 20180815
  Receipt Date: 20210617
  Transmission Date: 20210716
  Serious: No
  Sender: FDA-Public Use
  Company Number: US-VIFOR (INTERNATIONAL) INC.-VIT-2016-06959

PATIENT
  Age: 71 Year
  Sex: Male
  Weight: 78 kg

DRUGS (17)
  1. VELTASSA [Suspect]
     Active Substance: PATIROMER
     Indication: HYPERKALAEMIA
     Route: 048
     Dates: start: 20160316
  2. METAMUCIL [Concomitant]
     Active Substance: PLANTAGO SEED
  3. PROPRANOLOL/HCTZ [Concomitant]
  4. LISINOPRIL. [Concomitant]
     Active Substance: LISINOPRIL
  5. DIALYVITE [Concomitant]
     Active Substance: ASCORBIC ACID\BIOTIN\CALCIUM PANTOTHENATE\COBALAMIN\FOLIC ACID\NIACINAMIDE\PYRIDOXINE HYDROCHLORIDE\RIBOFLAVIN\THIAMINE MONONITRATE
  6. PANTOPRAZOLE SODIUM. [Concomitant]
     Active Substance: PANTOPRAZOLE SODIUM
  7. VITAMIN D3 [Concomitant]
     Active Substance: CHOLECALCIFEROL
  8. TYLENOL [Concomitant]
     Active Substance: ACETAMINOPHEN
  9. TUMS [Concomitant]
     Active Substance: CALCIUM CARBONATE
  10. TRAZODONE HYDROCHLORIDE. [Concomitant]
     Active Substance: TRAZODONE HYDROCHLORIDE
  11. HEPARIN SODIUM PORCINE [Concomitant]
     Active Substance: HEPARIN SODIUM
  12. VITAMIN D [Concomitant]
     Active Substance: VITAMIN D NOS
  13. LYRICA [Concomitant]
     Active Substance: PREGABALIN
  14. CALCITRIOL. [Concomitant]
     Active Substance: CALCITRIOL
  15. EPOGEN [Concomitant]
     Active Substance: ERYTHROPOIETIN
  16. PROMETHAZINE HCL [Concomitant]
     Active Substance: PROMETHAZINE HYDROCHLORIDE
  17. ASPIRIN. [Concomitant]
     Active Substance: ASPIRIN

REACTIONS (3)
  - Blood potassium increased [Unknown]
  - No adverse event [Unknown]
  - Treatment noncompliance [Unknown]

NARRATIVE: CASE EVENT DATE: 2016
